FAERS Safety Report 8230299-5 (Version None)
Quarter: 2012Q1

REPORT INFORMATION
  Report Type: 
  Country: None (occurrence: None)
  Receive Date: 20120323
  Receipt Date: 20120313
  Transmission Date: 20120608
  Serious: Yes (Hospitalization, Other)
  Sender: FDA-Public Use
  Company Number: US-JNJFOC-20120308208

PATIENT
  Sex: Male
  Weight: 74.84 kg

DRUGS (13)
  1. FENTANYL CITRATE [Suspect]
     Route: 062
  2. DURAGESIC-100 [Suspect]
     Route: 062
     Dates: start: 19940101
  3. DURAGESIC-100 [Suspect]
     Route: 062
  4. FENTANYL-100 [Suspect]
     Route: 062
  5. FENTANYL-100 [Suspect]
     Route: 062
  6. FENTANYL CITRATE [Suspect]
     Indication: ARTHRALGIA
     Route: 062
  7. DURAGESIC-100 [Suspect]
     Indication: ARTHRALGIA
     Route: 062
  8. DURAGESIC-100 [Suspect]
     Route: 062
  9. FENTANYL-100 [Suspect]
     Indication: ARTHRALGIA
     Route: 062
  10. FENTANYL-100 [Suspect]
     Route: 062
  11. FENTANYL-100 [Suspect]
     Route: 062
  12. DURAGESIC-100 [Suspect]
     Route: 062
  13. FENTANYL CITRATE [Suspect]
     Route: 062

REACTIONS (9)
  - WITHDRAWAL SYNDROME [None]
  - PAIN [None]
  - DEVICE DISLOCATION [None]
  - SKIN LESION [None]
  - ADVERSE DRUG REACTION [None]
  - INFECTION [None]
  - PRODUCT QUALITY ISSUE [None]
  - BREAKTHROUGH PAIN [None]
  - WRONG TECHNIQUE IN DRUG USAGE PROCESS [None]
